FAERS Safety Report 11308604 (Version 34)
Quarter: 2020Q2

REPORT INFORMATION
  Report Type: Report from Study
  Country: CA (occurrence: CA)
  Receive Date: 20150724
  Receipt Date: 20200531
  Transmission Date: 20200713
  Serious: Yes (Death, Hospitalization, Other)
  Sender: FDA-Public Use
  Company Number: PHHY2015CA083858

PATIENT
  Age: 76 Year
  Sex: Male
  Weight: 102 kg

DRUGS (7)
  1. SANDOSTATIN LAR DEPOT [Suspect]
     Active Substance: OCTREOTIDE ACETATE
     Dosage: 20 MG, QMO
     Route: 030
     Dates: start: 20190423
  2. SANDOSTATIN LAR DEPOT [Suspect]
     Active Substance: OCTREOTIDE ACETATE
     Indication: ANGIODYSPLASIA
     Dosage: 20 MG, QMO
     Route: 030
     Dates: start: 20150609
  3. MONOCOR [Concomitant]
     Active Substance: BISOPROLOL FUMARATE
     Indication: ANGIODYSPLASIA
     Dosage: 20 MG, QMO
     Route: 065
     Dates: start: 2016
  4. EPREX [Concomitant]
     Active Substance: ERYTHROPOIETIN
     Indication: ERYTHROPOIESIS ABNORMAL
     Dosage: UNK
     Route: 058
  5. SANDOSTATIN [Suspect]
     Active Substance: OCTREOTIDE ACETATE
     Indication: ANGIODYSPLASIA
     Dosage: UNK, TID
     Route: 058
     Dates: start: 2015
  6. BISOPROLOL [Concomitant]
     Active Substance: BISOPROLOL
     Indication: PRODUCT USED FOR UNKNOWN INDICATION
     Dosage: 5 MG, QD
     Route: 065
  7. SANDOSTATIN LAR DEPOT [Suspect]
     Active Substance: OCTREOTIDE ACETATE
     Dosage: 20 MG, QMO
     Route: 030
     Dates: start: 20180904

REACTIONS (34)
  - Loss of consciousness [Unknown]
  - Hypotension [Unknown]
  - Pulmonary mass [Unknown]
  - Dyspnoea [Unknown]
  - Cough [Unknown]
  - Heart rate decreased [Unknown]
  - Oedema peripheral [Unknown]
  - Death [Fatal]
  - Atrial fibrillation [Not Recovered/Not Resolved]
  - Blood pressure diastolic decreased [Unknown]
  - Peripheral swelling [Unknown]
  - Epistaxis [Unknown]
  - Sinus congestion [Unknown]
  - Fall [Unknown]
  - Cerebrovascular accident [Unknown]
  - Pneumonia [Unknown]
  - Blood pressure systolic increased [Unknown]
  - Eye contusion [Unknown]
  - Fatigue [Unknown]
  - Eye inflammation [Unknown]
  - Productive cough [Unknown]
  - Nausea [Unknown]
  - Dizziness [Unknown]
  - Haemoglobin decreased [Unknown]
  - Gout [Unknown]
  - Abdominal pain [Unknown]
  - Contusion [Unknown]
  - Product use in unapproved indication [Unknown]
  - White blood cell count decreased [Unknown]
  - Weight decreased [Unknown]
  - Bradycardia [Unknown]
  - Nasopharyngitis [Unknown]
  - Nervous system disorder [Unknown]
  - Injection site pain [Unknown]

NARRATIVE: CASE EVENT DATE: 2015
